FAERS Safety Report 23956562 (Version 1)
Quarter: 2024Q2

REPORT INFORMATION
  Report Type: Spontaneous
  Country: US (occurrence: US)
  Receive Date: 20240610
  Receipt Date: 20240610
  Transmission Date: 20240716
  Serious: No
  Sender: FDA-Public Use
  Company Number: US-STI Pharma LLC-2157947

PATIENT
  Age: 63 Year
  Sex: Female

DRUGS (4)
  1. ETHAMBUTOL HYDROCHLORIDE [Suspect]
     Active Substance: ETHAMBUTOL HYDROCHLORIDE
     Dates: start: 202208, end: 2023
  2. AZITHROMYCIN [Concomitant]
     Active Substance: AZITHROMYCIN
  3. AMIKACIN [Concomitant]
     Active Substance: AMIKACIN
  4. RIFAMPIN [Concomitant]
     Active Substance: RIFAMPIN

REACTIONS (3)
  - Dyschromatopsia [Unknown]
  - Mycobacterium avium complex infection [Unknown]
  - Optic neuritis [Unknown]
